FAERS Safety Report 8292232-X (Version None)
Quarter: 2012Q2

REPORT INFORMATION
  Report Type: 
  Country: None (occurrence: None)
  Receive Date: 20120413
  Receipt Date: 20120404
  Transmission Date: 20120825
  Serious: Yes (Hospitalization, Other)
  Sender: FDA-Public Use
  Company Number: 2012SP018320

PATIENT
  Age: 53 Year
  Sex: Female
  Weight: 64 kg

DRUGS (12)
  1. TELAVIC (ANTIVIRALS NOS) [Suspect]
     Indication: HEPATITIS C
     Dosage: 1500 MG;QD;PO
     Route: 048
     Dates: start: 20111221, end: 20120313
  2. VOLTAREN /01160501/ [Concomitant]
  3. PRIMPERAN /00041902/ [Concomitant]
  4. MAGNESIUM SULFATE [Concomitant]
  5. LOXONIN /00890701/ [Concomitant]
  6. SELBEX [Concomitant]
  7. PEG-INTRON [Suspect]
     Indication: HEPATITIS C
     Dosage: 1.3 MCG/KG;QW;SC
     Route: 058
     Dates: start: 20111221
  8. ZOLOFT [Concomitant]
  9. REBETOL [Suspect]
     Indication: HEPATITIS C
     Dosage: 400 MG;QD;PO
     Route: 048
     Dates: start: 20111221
  10. RINDERON-VG [Concomitant]
  11. MEILAX [Concomitant]
  12. NITRAZEPAM [Concomitant]

REACTIONS (10)
  - INJECTION SITE REACTION [None]
  - ERYTHEMA MULTIFORME [None]
  - DISSEMINATED INTRAVASCULAR COAGULATION [None]
  - COLLAGEN DISORDER [None]
  - RASH PAPULAR [None]
  - HAEMORRHOIDS [None]
  - PAPULE [None]
  - BLOOD URIC ACID INCREASED [None]
  - NAUSEA [None]
  - TREMOR [None]
